FAERS Safety Report 7511560-6 (Version None)
Quarter: 2011Q2

REPORT INFORMATION
  Report Type: 
  Country: None (occurrence: None)
  Receive Date: 20110531
  Receipt Date: 20110513
  Transmission Date: 20111010
  Serious: Yes (Hospitalization, Other)
  Sender: FDA-Public Use
  Company Number: DE-GENZYME-FLUD-1001206

PATIENT
  Sex: Female

DRUGS (10)
  1. ZEVALIN [Suspect]
     Indication: STEM CELL TRANSPLANT
  2. RITUXIMAB [Suspect]
     Indication: MANTLE CELL LYMPHOMA
     Dosage: 250 MG/M2, QDX8 ON DAY -21 TO DAY -14
     Route: 065
     Dates: start: 20100501
  3. CYCLOPHOSPHAMIDE [Suspect]
     Indication: STEM CELL TRANSPLANT
  4. YTTRIUM (90 Y) CHLORIDE [Suspect]
     Indication: STEM CELL TRANSPLANT
  5. CYCLOPHOSPHAMIDE [Suspect]
     Indication: MANTLE CELL LYMPHOMA
     Dosage: 300 MG/M2, QDX5 ON DAY -8 TO DAY -4
     Route: 042
     Dates: start: 20100501
  6. ZEVALIN [Suspect]
     Indication: MANTLE CELL LYMPHOMA
     Dosage: UNK, ON DAY -14
     Route: 042
     Dates: start: 20100501
  7. YTTRIUM (90 Y) CHLORIDE [Suspect]
     Indication: MANTLE CELL LYMPHOMA
     Dosage: 0.4 MCI/KG, ONCE  MAX 32 MCI
     Route: 042
  8. FLUDARA [Suspect]
     Indication: MANTLE CELL LYMPHOMA
     Dosage: 30 MG/M2, QDX5 ON DAY -8 TO DAY -4
     Route: 042
     Dates: start: 20100501
  9. RITUXIMAB [Suspect]
     Indication: STEM CELL TRANSPLANT
  10. FLUDARA [Suspect]
     Indication: STEM CELL TRANSPLANT

REACTIONS (2)
  - MANTLE CELL LYMPHOMA RECURRENT [None]
  - PNEUMONIA [None]
